FAERS Safety Report 5380249-4 (Version None)
Quarter: 2007Q3

REPORT INFORMATION
  Report Type: 
  Country: None (occurrence: None)
  Receive Date: 20070706
  Receipt Date: 20070515
  Transmission Date: 20080115
  Serious: No
  Sender: FDA-Public Use
  Company Number: A0651397A

PATIENT
  Age: 43 Year
  Sex: Female

DRUGS (10)
  1. TYKERB [Suspect]
     Indication: BREAST CANCER
     Dosage: 1250MG PER DAY
     Route: 048
     Dates: start: 20070510
  2. XELODA [Concomitant]
  3. LEXAPRO [Concomitant]
  4. NEURONTIN [Concomitant]
  5. ZANTAC [Concomitant]
  6. COMPAZINE [Concomitant]
  7. OXYCODONE HCL [Concomitant]
  8. STOOL SOFTENER [Concomitant]
  9. ZOMETA [Concomitant]
  10. TUMS [Concomitant]

REACTIONS (1)
  - FATIGUE [None]
